FAERS Safety Report 19908054 (Version 1)
Quarter: 2021Q3

REPORT INFORMATION
  Report Type: Spontaneous
  Country: US (occurrence: US)
  Receive Date: 20210930
  Receipt Date: 20210930
  Transmission Date: 20211014
  Serious: Yes (Other)
  Sender: FDA-Public Use
  Company Number: US-UNICHEM PHARMACEUTICALS (USA) INC-UCM202109-000874

PATIENT
  Sex: Female
  Weight: 79.4 kg

DRUGS (1)
  1. TOPIRAMATE. [Suspect]
     Active Substance: TOPIRAMATE
     Indication: PRODUCT USED FOR UNKNOWN INDICATION
     Dates: start: 20210915

REACTIONS (6)
  - Headache [Unknown]
  - Cerebrospinal fluid leakage [Unknown]
  - Feeling abnormal [Unknown]
  - Nystagmus [Unknown]
  - Reading disorder [Unknown]
  - Eye pain [Unknown]
